FAERS Safety Report 21206727 (Version 1)
Quarter: 2022Q3

REPORT INFORMATION
  Report Type: Spontaneous
  Country: US (occurrence: None)
  Receive Date: 20220811
  Receipt Date: 20220811
  Transmission Date: 20221027
  Serious: Yes (Other)
  Sender: FDA-Public Use
  Company Number: None

PATIENT
  Age: 63 Year
  Sex: Male
  Weight: 78.75 kg

DRUGS (2)
  1. CLOBETASOL PROPIONATE [Suspect]
     Active Substance: CLOBETASOL PROPIONATE
     Indication: Pruritus
     Dosage: OTHER QUANTITY : 1 SPRAY(S);?
     Route: 061
     Dates: start: 20220810
  2. FLOMAX [Concomitant]
     Active Substance: TAMSULOSIN HYDROCHLORIDE

REACTIONS (6)
  - Cough [None]
  - Oropharyngeal pain [None]
  - Respiratory tract congestion [None]
  - Dry throat [None]
  - Dysphagia [None]
  - Dysphonia [None]

NARRATIVE: CASE EVENT DATE: 20220811
